FAERS Safety Report 25504233 (Version 1)
Quarter: 2025Q3

REPORT INFORMATION
  Report Type: Spontaneous
  Country: US (occurrence: US)
  Receive Date: 20250702
  Receipt Date: 20250702
  Transmission Date: 20251021
  Serious: No
  Sender: MYLAN
  Company Number: US-MYLANLABS-2025M1054822

PATIENT
  Age: 85 Year
  Sex: Female

DRUGS (4)
  1. NEURONTIN [Suspect]
     Active Substance: GABAPENTIN
     Indication: Pain
     Dosage: 300 MILLIGRAM, TID (TAKE 1 CAPSULE BY MOUTH 3 TIMES DAILY AS NEEDED)
     Dates: start: 20250210
  2. NEURONTIN [Suspect]
     Active Substance: GABAPENTIN
     Dosage: 300 MILLIGRAM, TID (TAKE 1 CAPSULE BY MOUTH 3 TIMES DAILY AS NEEDED)
     Route: 048
     Dates: start: 20250210
  3. NEURONTIN [Suspect]
     Active Substance: GABAPENTIN
     Dosage: 300 MILLIGRAM, TID (TAKE 1 CAPSULE BY MOUTH 3 TIMES DAILY AS NEEDED)
     Route: 048
     Dates: start: 20250210
  4. NEURONTIN [Suspect]
     Active Substance: GABAPENTIN
     Dosage: 300 MILLIGRAM, TID (TAKE 1 CAPSULE BY MOUTH 3 TIMES DAILY AS NEEDED)
     Dates: start: 20250210

REACTIONS (1)
  - Off label use [Unknown]

NARRATIVE: CASE EVENT DATE: 20250210
